FAERS Safety Report 10533900 (Version 1)
Quarter: 2014Q4

REPORT INFORMATION
  Report Type: Spontaneous
  Country: JP (occurrence: None)
  Receive Date: 20141020
  Receipt Date: 20141020
  Transmission Date: 20150529
  Serious: Yes (Other)
  Sender: FDA-Public Use
  Company Number: A201009257

PATIENT
  Age: 68 Year
  Sex: Male

DRUGS (11)
  1. FOSAMPRENAVIR [Suspect]
     Active Substance: FOSAMPRENAVIR
     Indication: ACQUIRED IMMUNODEFICIENCY SYNDROME
     Route: 048
     Dates: start: 20090107, end: 20090611
  2. FOSAMPRENAVIR [Suspect]
     Active Substance: FOSAMPRENAVIR
     Indication: ACQUIRED IMMUNODEFICIENCY SYNDROME
     Route: 048
     Dates: start: 20090107
  3. DIFLUCAN [Concomitant]
     Active Substance: FLUCONAZOLE
  4. BEZATOL SR (BEZAFIBRATE) [Concomitant]
     Active Substance: BEZAFIBRATE
  5. NORVIR [Suspect]
     Active Substance: RITONAVIR
     Indication: ACQUIRED IMMUNODEFICIENCY SYNDROME
     Route: 048
     Dates: start: 20090612, end: 20101005
  6. ZITHROMAC [Concomitant]
     Active Substance: AZITHROMYCIN DIHYDRATE
  7. BAKTAR (SULFAMETHOXAZOLE, TRIMETHOPRIM) [Concomitant]
  8. NEUTROGIN (LENOGRASTIM) [Concomitant]
  9. PREZISTANAIVE [Suspect]
     Active Substance: DARUNAVIR
     Indication: ACQUIRED IMMUNODEFICIENCY SYNDROME
     Route: 048
     Dates: start: 20101006
  10. NOVIR (RITONAVIR) [Concomitant]
  11. CRESTOR [Concomitant]
     Active Substance: ROSUVASTATIN CALCIUM

REACTIONS (3)
  - Rash [None]
  - Diabetes mellitus [None]
  - Pancytopenia [None]

NARRATIVE: CASE EVENT DATE: 20090122
